FAERS Safety Report 6111389-X (Version None)
Quarter: 2009Q1

REPORT INFORMATION
  Report Type: 
  Country: None (occurrence: None)
  Receive Date: 20090311
  Receipt Date: 20090304
  Transmission Date: 20090719
  Serious: Yes (Death, Life-Threatening, Hospitalization, Other)
  Sender: FDA-Public Use
  Company Number: B0564293A

PATIENT
  Age: 67 Year
  Sex: Male

DRUGS (3)
  1. MELPHALAN [Suspect]
     Indication: MULTIPLE MYELOMA
     Dosage: 18MGK PER DAY
     Dates: start: 20090129, end: 20090131
  2. THALIDOMIDE [Suspect]
     Indication: MULTIPLE MYELOMA
     Dosage: 200MG PER DAY
     Route: 048
     Dates: start: 20090129, end: 20090209
  3. PREDNISONE [Suspect]
     Indication: MULTIPLE MYELOMA

REACTIONS (10)
  - BONE PAIN [None]
  - COMA HEPATIC [None]
  - COUGH [None]
  - DIZZINESS [None]
  - HEPATITIS B [None]
  - MULTI-ORGAN FAILURE [None]
  - NAUSEA [None]
  - NEUTROPENIA [None]
  - PNEUMONIA [None]
  - SEPSIS [None]
